FAERS Safety Report 13378275 (Version 1)
Quarter: 2017Q1

REPORT INFORMATION
  Report Type: Report from Study
  Country: MX (occurrence: MX)
  Receive Date: 20170328
  Receipt Date: 20170328
  Transmission Date: 20170429
  Serious: Yes (Hospitalization)
  Sender: FDA-Public Use
  Company Number: MX-IPCA LABORATORIES LIMITED-IPC201703-000335

PATIENT
  Age: 29 Year
  Sex: Male

DRUGS (1)
  1. ALLOPURINOL. [Suspect]
     Active Substance: ALLOPURINOL
     Indication: HYPERURICAEMIA

REACTIONS (3)
  - Autoimmune hypothyroidism [Recovered/Resolved]
  - Autoimmune haemolytic anaemia [Unknown]
  - Drug reaction with eosinophilia and systemic symptoms [Unknown]
